FAERS Safety Report 23611620 (Version 2)
Quarter: 2024Q4

REPORT INFORMATION
  Report Type: Spontaneous
  Country: US (occurrence: US)
  Receive Date: 20240308
  Receipt Date: 20241104
  Transmission Date: 20250115
  Serious: Yes (Other)
  Sender: PFIZER
  Company Number: US-PFIZER INC-202300400558

PATIENT
  Age: 68 Year
  Sex: Female

DRUGS (1)
  1. CIBINQO [Suspect]
     Active Substance: ABROCITINIB
     Indication: Dermatitis atopic
     Dosage: 100 MG

REACTIONS (4)
  - Type 1 diabetes mellitus [Unknown]
  - Rash [Unknown]
  - Dry eye [Unknown]
  - Blood creatinine increased [Unknown]
